FAERS Safety Report 18145879 (Version 1)
Quarter: 2020Q3

REPORT INFORMATION
  Report Type: Spontaneous
  Country: AU (occurrence: AU)
  Receive Date: 20200813
  Receipt Date: 20200813
  Transmission Date: 20201103
  Serious: Yes (Life-Threatening, Hospitalization, Other)
  Sender: FDA-Public Use
  Company Number: AU-APOTEX-2020AP015971

PATIENT
  Age: 55 Year
  Sex: Female

DRUGS (4)
  1. TEMAZEPAM. [Suspect]
     Active Substance: TEMAZEPAM
     Indication: DEPRESSION
     Dosage: UNK (OVERDOSE WITH 120 MG)
     Route: 065
  2. OXYCODONE [Suspect]
     Active Substance: OXYCODONE
     Indication: DEPRESSION
     Dosage: UNK (OVERDOSE WITH 75 MG)
     Route: 065
  3. PAROXETINE. [Suspect]
     Active Substance: PAROXETINE
     Indication: DEPRESSION
     Dosage: 1600 MILLIGRAM
     Route: 065
  4. OXAZEPAM. [Suspect]
     Active Substance: OXAZEPAM
     Indication: DEPRESSION
     Dosage: UNK (OVERDOSE WITH 80 MG)
     Route: 065

REACTIONS (36)
  - Pulse absent [Recovered/Resolved]
  - Intensive care unit acquired weakness [Recovered/Resolved]
  - Bacterial translocation [Recovered/Resolved]
  - Pneumonia aspiration [Recovered/Resolved]
  - Gastric ulcer [Recovered/Resolved]
  - Pneumonia [Recovered/Resolved]
  - Delirium [Recovered/Resolved]
  - Thrombocytopenia [Recovered/Resolved]
  - Extensor plantar response [Recovered/Resolved]
  - Memory impairment [Recovered/Resolved]
  - Anaemia [Recovered/Resolved]
  - Hyperthermia [Recovered/Resolved]
  - Sepsis [Recovered/Resolved]
  - Areflexia [Recovered/Resolved]
  - Coagulopathy [Recovered/Resolved]
  - Respiratory acidosis [Recovered/Resolved]
  - Haemoglobin decreased [Recovered/Resolved]
  - Tachycardia [Recovered/Resolved]
  - Cardiac arrest [Recovered/Resolved]
  - Shock [Recovered/Resolved]
  - Intentional overdose [Unknown]
  - Distributive shock [Recovered/Resolved]
  - Respiratory depression [Recovered/Resolved]
  - Leukopenia [Recovered/Resolved]
  - Coma [Recovered/Resolved]
  - Mucosal inflammation [Recovered/Resolved]
  - Toxicity to various agents [Recovered/Resolved]
  - Hyperkalaemia [Recovered/Resolved]
  - Hypoxia [Recovered/Resolved]
  - Oesophagitis ulcerative [Recovered/Resolved]
  - Upper gastrointestinal haemorrhage [Unknown]
  - Fatigue [Recovered/Resolved]
  - Sinus bradycardia [Recovered/Resolved]
  - Serotonin syndrome [Recovered/Resolved]
  - Clonus [Recovered/Resolved]
  - Oculocephalogyric reflex absent [Recovered/Resolved]
